FAERS Safety Report 11704797 (Version 2)
Quarter: 2015Q4

REPORT INFORMATION
  Report Type: Spontaneous
  Country: US (occurrence: US)
  Receive Date: 20151104
  Receipt Date: 20151110
  Transmission Date: 20160304
  Serious: No
  Sender: FDA-Public Use
  Company Number: US-ELI_LILLY_AND_COMPANY-US201101003846

PATIENT
  Age: 72 Year
  Sex: Female

DRUGS (5)
  1. FORTEO [Suspect]
     Active Substance: TERIPARATIDE
     Dosage: 20 UG, QD
  2. FORTEO [Suspect]
     Active Substance: TERIPARATIDE
     Dosage: 20 UG, QD
  3. FORTEO [Suspect]
     Active Substance: TERIPARATIDE
     Indication: OSTEOPOROSIS
     Dosage: 20 UG, QD
     Dates: start: 20110104
  4. FORTEO [Suspect]
     Active Substance: TERIPARATIDE
     Dosage: 20 UG, QD
  5. FORTEO [Suspect]
     Active Substance: TERIPARATIDE
     Dosage: 20 UG, QD

REACTIONS (17)
  - Surgery [Unknown]
  - Fatigue [Unknown]
  - Injection site pain [Recovered/Resolved]
  - Drug dose omission [Unknown]
  - Visual impairment [Unknown]
  - Weight increased [Unknown]
  - Underdose [Unknown]
  - Fatigue [Unknown]
  - Muscle spasms [Recovered/Resolved]
  - Feeling abnormal [Unknown]
  - Injection site reaction [Unknown]
  - Asthenia [Unknown]
  - Cataract [Unknown]
  - Pain in extremity [Unknown]
  - Injection site haemorrhage [Recovered/Resolved]
  - Muscle spasms [Recovered/Resolved]
  - Somnolence [Unknown]

NARRATIVE: CASE EVENT DATE: 20110104
